FAERS Safety Report 15974416 (Version 1)
Quarter: 2019Q1

REPORT INFORMATION
  Report Type: Spontaneous
  Country: RU (occurrence: RU)
  Receive Date: 20190218
  Receipt Date: 20190218
  Transmission Date: 20190418
  Serious: Yes (Other)
  Sender: FDA-Public Use
  Company Number: RU-BRISTOL-MYERS SQUIBB COMPANY-BMS-2019-014311

PATIENT

DRUGS (1)
  1. NIVOLUMAB [Suspect]
     Active Substance: NIVOLUMAB
     Indication: PRODUCT USED FOR UNKNOWN INDICATION
     Dosage: UNAV
     Route: 065

REACTIONS (1)
  - Anaphylactic shock [Unknown]
